FAERS Safety Report 20588869 (Version 1)
Quarter: 2022Q1

REPORT INFORMATION
  Report Type: Spontaneous
  Country: US (occurrence: None)
  Receive Date: 20220311
  Receipt Date: 20220311
  Transmission Date: 20220423
  Serious: No
  Sender: FDA-Public Use
  Company Number: None

PATIENT
  Sex: Female

DRUGS (1)
  1. HUMIRA [Suspect]
     Active Substance: ADALIMUMAB
     Indication: Psoriasis
     Dosage: OTHER FREQUENCY : Q7 DAYS;?
     Route: 058
     Dates: start: 202102

REACTIONS (4)
  - Drug ineffective [None]
  - Oral pain [None]
  - Hyperhidrosis [None]
  - Full blood count increased [None]
